FAERS Safety Report 16216267 (Version 1)
Quarter: 2019Q2

REPORT INFORMATION
  Report Type: Report from Study
  Country: FR (occurrence: FR)
  Receive Date: 20190419
  Receipt Date: 20190419
  Transmission Date: 20190711
  Serious: Yes (Life-Threatening, Hospitalization)
  Sender: FDA-Public Use
  Company Number: FR-TEVA-2019-FR-1040719

PATIENT
  Age: 62 Year
  Sex: Male
  Weight: 70 kg

DRUGS (6)
  1. CISPLATIN. [Suspect]
     Active Substance: CISPLATIN
     Indication: GASTRIC CANCER
     Dosage: NEBULISATION; 7.5 MG/M2 OF BODY SURFACE IN 150 ML OF NACL 0.9% IMMEDIATELY FOLLOWED BY DOXORUBICIN
     Route: 033
  2. DOXORUBICIN [Suspect]
     Active Substance: DOXORUBICIN
     Indication: GASTRIC CANCER
     Dosage: NEBULISATION; 1.5 MG/M2 OF BODY SURFACE IN 50 ML OF NACL 0.9%
     Route: 033
  3. SODIUM CHLORIDE. [Concomitant]
     Active Substance: SODIUM CHLORIDE
     Dosage: NEBULISATION; WITH CISPALTIN
     Route: 033
  4. IRINOTECAN [Suspect]
     Active Substance: IRINOTECAN
     Indication: GASTRIC CANCER
     Dosage: DURING THE PIPAC
     Route: 065
  5. SODIUM CHLORIDE. [Concomitant]
     Active Substance: SODIUM CHLORIDE
     Dosage: NEBULISATION; WITH DOXORUBICIN
     Route: 033
  6. 5 FLUORO-URACILE [Suspect]
     Active Substance: FLUOROURACIL
     Indication: GASTRIC CANCER
     Dosage: DURING THE PIPAC
     Route: 065

REACTIONS (2)
  - Hypoxia [Recovering/Resolving]
  - Anaphylactic reaction [Recovering/Resolving]
